FAERS Safety Report 8289058-X (Version None)
Quarter: 2012Q2

REPORT INFORMATION
  Report Type: 
  Country: None (occurrence: None)
  Receive Date: 20120412
  Receipt Date: 20120329
  Transmission Date: 20120825
  Serious: Yes (Hospitalization)
  Sender: FDA-Public Use
  Company Number: USW201203-000052

PATIENT
  Age: 73 Year
  Sex: Female
  Weight: 52.6173 kg

DRUGS (10)
  1. APOKYN [Suspect]
     Indication: PARKINSON'S DISEASE
     Dosage: 0.3 ML THREE TIMES A DAY
  2. PROTONIX [Concomitant]
  3. PROPRANOLOL [Concomitant]
  4. MIRALEX POWDER [Concomitant]
  5. SINEMET [Concomitant]
  6. ZOLOFT [Concomitant]
  7. LORAZEPAM [Concomitant]
  8. ZANTAC [Concomitant]
  9. SEROQUEL [Concomitant]
  10. SIENEMET [Concomitant]

REACTIONS (1)
  - HOSPITALISATION [None]
